FAERS Safety Report 9540757 (Version 2)
Quarter: 2013Q4

REPORT INFORMATION
  Report Type: Report from Study
  Country: US (occurrence: US)
  Receive Date: 20130920
  Receipt Date: 20131029
  Transmission Date: 20140711
  Serious: Yes (Hospitalization)
  Sender: FDA-Public Use
  Company Number: PHHO2013US012172

PATIENT
  Age: 60 Year
  Sex: Male
  Weight: 71.66 kg

DRUGS (12)
  1. AFINITOR [Suspect]
     Indication: LYMPHOMA
     Dosage: 5 MG, QD FOR 28 DAYS
     Route: 048
     Dates: start: 20130829, end: 20130918
  2. AFINITOR [Suspect]
     Dosage: 5 MG, QD FOR 28 DAYS
     Route: 048
  3. REVLIMID [Suspect]
     Indication: LYMPHOMA
     Dosage: 10 MG, QD FOR 28 DAYS
     Route: 048
     Dates: start: 20130829, end: 20130918
  4. REVLIMID [Suspect]
     Dosage: 5 MG, UNK
     Route: 048
  5. ACYCLOVIR [Concomitant]
     Dosage: 800 MG, BID
     Route: 048
  6. BACITRACIN [Concomitant]
     Dosage: 500, U/G, OINTMENT
     Route: 047
  7. ZYRTEC [Concomitant]
     Dosage: 5 MG, QD
     Route: 048
  8. ATRAX [Concomitant]
     Dosage: 25 MG, QHS (25 MG, BE)
     Route: 048
  9. OXYCODONE [Concomitant]
     Dosage: 5 MG, Q6H
     Route: 048
  10. POTASSIUM CHLORIDE [Concomitant]
     Dosage: 20 MEQ, QD
     Route: 048
  11. LYRICA [Concomitant]
     Dosage: UNK
     Route: 048
  12. LYRICA [Concomitant]
     Dosage: 150 MG AM, 75 MG P.M
     Route: 048

REACTIONS (1)
  - Cholecystitis [Recovered/Resolved]
